FAERS Safety Report 9435545 (Version 1)
Quarter: 2013Q3

REPORT INFORMATION
  Report Type: Spontaneous
  Country: GB (occurrence: GB)
  Receive Date: 20130801
  Receipt Date: 20130801
  Transmission Date: 20140515
  Serious: Yes (Other)
  Sender: FDA-Public Use
  Company Number: GB-WATSON-2013-13469

PATIENT
  Age: 67 Year
  Sex: Male

DRUGS (4)
  1. ROPINIROLE HYDROCHLORIDE (UNKNOWN) [Suspect]
     Indication: PARKINSON^S DISEASE
     Dosage: 4 MG, DAILY
     Route: 048
     Dates: start: 2012, end: 201210
  2. ROPINIROLE HYDROCHLORIDE (UNKNOWN) [Suspect]
     Dosage: UNK, UNKNOWN
     Route: 048
     Dates: start: 201210
  3. SELEGILINE [Concomitant]
     Indication: PRODUCT USED FOR UNKNOWN INDICATION
     Dosage: UNK, UNKNOWN
     Route: 065
  4. CO-CARELDOPA [Concomitant]
     Indication: PRODUCT USED FOR UNKNOWN INDICATION
     Dosage: UNK, UNKNOWN
     Route: 065

REACTIONS (3)
  - Parkinsonian crisis [Recovered/Resolved]
  - Hypotension [Unknown]
  - Withdrawal syndrome [Unknown]
